FAERS Safety Report 22812852 (Version 3)
Quarter: 2024Q1

REPORT INFORMATION
  Report Type: Spontaneous
  Country: US (occurrence: US)
  Receive Date: 20230811
  Receipt Date: 20240313
  Transmission Date: 20240410
  Serious: No
  Sender: FDA-Public Use
  Company Number: US-SA-SAC20230810000292

PATIENT
  Age: 23 Year
  Sex: Female
  Weight: 56.699 kg

DRUGS (5)
  1. DUPIXENT [Suspect]
     Active Substance: DUPILUMAB
     Indication: Illness
     Dosage: 300 MG, QW
     Route: 058
  2. FLUCONAZOLE [Concomitant]
     Active Substance: FLUCONAZOLE
  3. METRONIDAZOLE [Concomitant]
     Active Substance: METRONIDAZOLE
  4. AMITRIPTYLINE [Concomitant]
     Active Substance: AMITRIPTYLINE
  5. ALBUTEROL SULFATE [Concomitant]
     Active Substance: ALBUTEROL SULFATE

REACTIONS (7)
  - Vomiting [Not Recovered/Not Resolved]
  - Decreased appetite [Not Recovered/Not Resolved]
  - Dyspnoea [Unknown]
  - Eating disorder [Unknown]
  - Malaise [Unknown]
  - Product dose omission issue [Unknown]
  - Weight decreased [Unknown]

NARRATIVE: CASE EVENT DATE: 20230805
